FAERS Safety Report 6622302-0 (Version None)
Quarter: 2010Q1

REPORT INFORMATION
  Report Type: 
  Country: None (occurrence: None)
  Receive Date: 20100305
  Receipt Date: 20100219
  Transmission Date: 20100710
  Serious: Yes (Hospitalization)
  Sender: FDA-Public Use
  Company Number: KV201000057

PATIENT
  Age: 69 Year
  Sex: Female
  Weight: 66.2 kg

DRUGS (6)
  1. MORPHINE SULFATE [Suspect]
     Indication: DRUG USE FOR UNKNOWN INDICATION
     Dosage: ORAL
     Route: 048
     Dates: start: 20080201, end: 20080501
  2. CLONAZEPAM [Concomitant]
  3. TRICOR [Concomitant]
  4. BACLOFEN [Concomitant]
  5. LISINOPRIL [Concomitant]
  6. SIMVASTATIN [Concomitant]

REACTIONS (1)
  - FALL [None]
